FAERS Safety Report 21281270 (Version 1)
Quarter: 2022Q3

REPORT INFORMATION
  Report Type: Spontaneous
  Country: US (occurrence: US)
  Receive Date: 20220901
  Receipt Date: 20220901
  Transmission Date: 20221027
  Serious: No
  Sender: FDA-Public Use
  Company Number: US-ALLERGAN-2214155US

PATIENT
  Age: 76 Year
  Sex: Female

DRUGS (12)
  1. FETZIMA [Suspect]
     Active Substance: LEVOMILNACIPRAN HYDROCHLORIDE
     Indication: Depression
     Dosage: 2 DF
     Dates: start: 20220423, end: 20220424
  2. SKYRIZI [Concomitant]
     Active Substance: RISANKIZUMAB-RZAA
     Indication: Psoriasis
     Dosage: 150 MG
  3. XIIDRA [Concomitant]
     Active Substance: LIFITEGRAST
     Indication: Dry eye
  4. SYNTHROID [Concomitant]
     Active Substance: LEVOTHYROXINE SODIUM
     Dosage: 50 ?G
     Route: 048
  5. VITAMIN D3 [Concomitant]
     Active Substance: CHOLECALCIFEROL
  6. NORCO [Concomitant]
     Active Substance: ACETAMINOPHEN\HYDROCODONE BITARTRATE
     Indication: Pain in extremity
     Dosage: UNK
     Dates: end: 20220421
  7. AMARYL [Concomitant]
     Active Substance: GLIMEPIRIDE
     Indication: Blood glucose increased
     Dosage: 2 MG
  8. Faxseed oil [Concomitant]
  9. FISH OIL [Concomitant]
     Active Substance: FISH OIL
  10. ZOMIG [Concomitant]
     Active Substance: ZOLMITRIPTAN
     Indication: Migraine
     Dosage: UNK, PRN
  11. BENTYL [Concomitant]
     Active Substance: DICYCLOMINE HYDROCHLORIDE
     Dosage: 10 MG, QHS
     Route: 047
  12. CHLORMEZANONE [Concomitant]
     Active Substance: CHLORMEZANONE
     Dosage: 15 MG, QHS
     Route: 048

REACTIONS (6)
  - Vision blurred [Recovered/Resolved]
  - Insomnia [Recovered/Resolved]
  - Headache [Not Recovered/Not Resolved]
  - Dizziness [Not Recovered/Not Resolved]
  - Nausea [Not Recovered/Not Resolved]
  - Hypersensitivity [Unknown]

NARRATIVE: CASE EVENT DATE: 20220423
